FAERS Safety Report 5441385-7 (Version None)
Quarter: 2007Q3

REPORT INFORMATION
  Report Type: 
  Country: None (occurrence: None)
  Receive Date: 20070903
  Receipt Date: 20070827
  Transmission Date: 20080115
  Serious: Yes (Other)
  Sender: FDA-Public Use
  Company Number: PHBS2007JP08247

PATIENT
  Age: 46 Year
  Sex: Female
  Weight: 54 kg

DRUGS (10)
  1. AREDIA [Suspect]
     Indication: METASTASES TO BONE
     Dosage: UNK, UNK
     Route: 065
     Dates: start: 20040127, end: 20060410
  2. ZOMETA [Suspect]
     Indication: METASTASES TO BONE
     Dosage: UNK, UNK
     Route: 042
     Dates: start: 20060516, end: 20070320
  3. TAXOL [Concomitant]
     Indication: METASTASES TO BONE
     Route: 042
     Dates: start: 20030826, end: 20050918
  4. HERCEPTIN [Concomitant]
     Indication: METASTASES TO BONE
     Route: 042
     Dates: start: 20030826
  5. TAMOXIFEN CITRATE [Concomitant]
     Dosage: 20 MG/DAY
     Route: 048
     Dates: start: 20050131, end: 20051012
  6. PROGESTON WYETH [Concomitant]
     Dosage: 600 MG/DAY
     Route: 048
     Dates: start: 20051013
  7. FURTULON [Concomitant]
     Dosage: 600 MG/DAY
     Route: 048
     Dates: start: 20051013, end: 20070613
  8. DUROTEP JANSSEN [Concomitant]
     Route: 061
     Dates: start: 20050123
  9. RITALIN [Concomitant]
     Dosage: 10 MG/DAY
     Route: 048
     Dates: start: 20050113
  10. XELODA [Concomitant]
     Dosage: 2400 MG/DAY
     Route: 048
     Dates: start: 20070614

REACTIONS (5)
  - DENTAL OPERATION [None]
  - GINGIVAL SWELLING [None]
  - OSTEONECROSIS [None]
  - PAIN IN JAW [None]
  - SEQUESTRECTOMY [None]
